FAERS Safety Report 7118603-2 (Version None)
Quarter: 2010Q4

REPORT INFORMATION
  Report Type: 
  Country: None (occurrence: None)
  Receive Date: 20101123
  Receipt Date: 20101118
  Transmission Date: 20110411
  Serious: Yes (Life-Threatening, Hospitalization, Other)
  Sender: FDA-Public Use
  Company Number: PHHY2010JP60656

PATIENT
  Sex: Female

DRUGS (11)
  1. NEORAL [Suspect]
     Indication: NEPHROTIC SYNDROME
     Dosage: 100 MG, UNK
     Route: 048
     Dates: start: 20100421
  2. NEORAL [Suspect]
     Dosage: 75 MG, UNK
     Route: 048
     Dates: start: 20100429
  3. NEORAL [Suspect]
     Dosage: 50 MG
     Route: 048
     Dates: start: 20100519
  4. PURSENNID [Concomitant]
     Indication: CONSTIPATION
     Dosage: 24 MG
     Route: 048
     Dates: start: 20100910, end: 20101001
  5. PREDNISOLONE [Concomitant]
     Indication: NEPHROTIC SYNDROME
     Dosage: 20 MG
     Route: 048
     Dates: start: 20100421
  6. PREDNISOLONE [Concomitant]
     Dosage: 10 MG
     Route: 048
  7. MAGMITT [Concomitant]
     Indication: CONSTIPATION
     Dosage: 750 MG
     Route: 048
     Dates: start: 20100910, end: 20101001
  8. WARFARIN [Concomitant]
     Indication: THROMBOSIS PROPHYLAXIS
     Dosage: 1.5 MG
     Dates: start: 20100405, end: 20100913
  9. COMELIAN [Concomitant]
     Indication: NEPHROTIC SYNDROME
     Dosage: 150 MG
     Dates: start: 20100405, end: 20100913
  10. FAMOTIDINE [Concomitant]
     Indication: PROPHYLAXIS
     Dosage: 20 MG
     Dates: start: 20100421, end: 20100915
  11. BAKTAR [Concomitant]
     Indication: PROPHYLAXIS
     Dosage: UNK
     Dates: start: 20100421, end: 20100915

REACTIONS (3)
  - ABORTION MISSED [None]
  - DRUG EXPOSURE DURING PREGNANCY [None]
  - UTERINE DILATION AND CURETTAGE [None]
